FAERS Safety Report 11900081 (Version 2)
Quarter: 2016Q1

REPORT INFORMATION
  Report Type: Spontaneous
  Country: US (occurrence: US)
  Receive Date: 20160108
  Receipt Date: 20160217
  Transmission Date: 20160526
  Serious: Yes (Other)
  Sender: FDA-Public Use
  Company Number: US-CELGENE-USA-2015123526

PATIENT
  Sex: Male
  Weight: 90.8 kg

DRUGS (6)
  1. MULTIVITAMINS [Concomitant]
     Active Substance: VITAMINS
     Indication: PRODUCT USED FOR UNKNOWN INDICATION
     Dosage: 81 MILLIGRAM
     Route: 065
  2. CARAFATE [Concomitant]
     Active Substance: SUCRALFATE
     Indication: PRODUCT USED FOR UNKNOWN INDICATION
     Route: 065
  3. REVLIMID [Suspect]
     Active Substance: LENALIDOMIDE
     Indication: LYMPHOPLASMACYTOID LYMPHOMA/IMMUNOCYTOMA
     Dosage: 20 MILLIGRAM
     Route: 048
     Dates: start: 20150818
  4. REVLIMID [Suspect]
     Active Substance: LENALIDOMIDE
     Indication: PLASMA CELL MYELOMA
  5. ASPIRIN. [Concomitant]
     Active Substance: ASPIRIN
     Indication: PRODUCT USED FOR UNKNOWN INDICATION
     Route: 048
  6. AVODART [Concomitant]
     Active Substance: DUTASTERIDE
     Indication: PRODUCT USED FOR UNKNOWN INDICATION
     Route: 065

REACTIONS (15)
  - Blood count abnormal [Unknown]
  - Oedema [Unknown]
  - Weight increased [Unknown]
  - Rash papular [Unknown]
  - Oedema peripheral [Unknown]
  - Muscular weakness [Not Recovered/Not Resolved]
  - Fatigue [Unknown]
  - Hallucination [Unknown]
  - Eye pruritus [Unknown]
  - Nausea [Unknown]
  - Dizziness [Unknown]
  - Musculoskeletal stiffness [Not Recovered/Not Resolved]
  - Eye pain [Unknown]
  - Neuropathy peripheral [Unknown]
  - Pruritus [Unknown]

NARRATIVE: CASE EVENT DATE: 2015
